FAERS Safety Report 17197481 (Version 1)
Quarter: 2019Q4

REPORT INFORMATION
  Report Type: Spontaneous
  Country: IT (occurrence: IT)
  Receive Date: 20191224
  Receipt Date: 20191224
  Transmission Date: 20200122
  Serious: Yes (Other)
  Sender: FDA-Public Use
  Company Number: IT-JNJFOC-20191227918

PATIENT
  Age: 4 Year
  Sex: Male

DRUGS (1)
  1. HALDOL [Suspect]
     Active Substance: HALOPERIDOL
     Indication: ACCIDENTAL EXPOSURE TO PRODUCT BY CHILD
     Route: 048

REACTIONS (4)
  - Seizure [Unknown]
  - Accidental exposure to product by child [Unknown]
  - Hyporeflexia [Unknown]
  - Catatonia [Unknown]

NARRATIVE: CASE EVENT DATE: 20191214
